FAERS Safety Report 9290034 (Version 1)
Quarter: 2013Q2

REPORT INFORMATION
  Report Type: Spontaneous
  Country: US (occurrence: None)
  Receive Date: 20130514
  Receipt Date: 20130514
  Transmission Date: 20140414
  Serious: Yes (Hospitalization)
  Sender: FDA-Public Use
  Company Number: None

PATIENT
  Age: 69 Year
  Sex: Male

DRUGS (3)
  1. AMOXICILLIN/ CLAVULANATE [Suspect]
     Indication: BRONCHITIS
     Dates: start: 20120430, end: 20120509
  2. SYNTHROID [Concomitant]
  3. VITAMINS [Concomitant]

REACTIONS (10)
  - Drug-induced liver injury [None]
  - Chromaturia [None]
  - Fatigue [None]
  - Jaundice [None]
  - Alanine aminotransferase increased [None]
  - Blood alkaline phosphatase increased [None]
  - Blood bilirubin increased [None]
  - Duodenal ulcer perforation [None]
  - Cholestasis [None]
  - Hepatic fibrosis [None]
